FAERS Safety Report 6165889-7 (Version None)
Quarter: 2009Q2

REPORT INFORMATION
  Report Type: 
  Country: None (occurrence: None)
  Receive Date: 20090422
  Receipt Date: 20090414
  Transmission Date: 20091009
  Serious: Yes (Death)
  Sender: FDA-Public Use
  Company Number: 2009VX000557

PATIENT
  Age: 82 Year
  Sex: Female
  Weight: 38 kg

DRUGS (5)
  1. FLUCYTOSINE (FLUCYTOSINE) [Suspect]
     Indication: CRYPTOCOCCOSIS
     Dosage: 4000 MG; QD; NGT
     Dates: start: 20060531, end: 20060624
  2. AMPHOTERICIN B [Suspect]
     Indication: MENINGITIS CRYPTOCOCCAL
     Dosage: 20 MG; QD; IV
     Route: 042
     Dates: start: 20060531, end: 20060624
  3. FLUCONAZOLE [Suspect]
     Indication: CRYPTOCOCCOSIS
     Dosage: 400 MG; QD; IV
     Route: 042
     Dates: start: 20060624, end: 20060707
  4. PREDNTSOLONE [Concomitant]
  5. METHOTREXATE [Concomitant]

REACTIONS (4)
  - CONDITION AGGRAVATED [None]
  - CRYPTOCOCCOSIS [None]
  - DRUG INEFFECTIVE [None]
  - GENERALISED ERYTHEMA [None]
